FAERS Safety Report 6840384-8 (Version None)
Quarter: 2010Q3

REPORT INFORMATION
  Report Type: 
  Country: None (occurrence: None)
  Receive Date: 20100714
  Receipt Date: 20100707
  Transmission Date: 20110219
  Serious: Yes (Hospitalization)
  Sender: FDA-Public Use
  Company Number: FR-BRISTOL-MYERS SQUIBB COMPANY-15185192

PATIENT
  Age: 80 Year
  Sex: Male

DRUGS (7)
  1. AMIKLIN INJ [Suspect]
     Dosage: 1DF= 1 SOLE INTAKE
     Dates: start: 20091114
  2. VANCOMYCIN [Suspect]
     Dates: start: 20091101, end: 20091123
  3. TAZOCILLINE [Suspect]
     Route: 042
     Dates: start: 20091101, end: 20091123
  4. NEBCIN [Suspect]
     Dates: start: 20091111, end: 20091114
  5. OFLOCET [Suspect]
     Dates: start: 20091111, end: 20091114
  6. ROCEPHIN [Suspect]
     Indication: LUNG DISORDER
     Dates: start: 20091102, end: 20091109
  7. ROCEPHIN [Suspect]
     Indication: HYPERTHERMIA
     Dates: start: 20091102, end: 20091109

REACTIONS (1)
  - ACUTE GENERALISED EXANTHEMATOUS PUSTULOSIS [None]
